FAERS Safety Report 6792633-2 (Version None)
Quarter: 2010Q2

REPORT INFORMATION
  Report Type: 
  Country: None (occurrence: None)
  Receive Date: 20100624
  Receipt Date: 20090702
  Transmission Date: 20101027
  Serious: Yes (Other)
  Sender: FDA-Public Use
  Company Number: US-PFIZER INC-2008065445

PATIENT
  Sex: Female
  Weight: 86 kg

DRUGS (10)
  1. PROVERA [Suspect]
     Indication: HORMONE REPLACEMENT THERAPY
     Dosage: 5/10MG
     Route: 048
     Dates: start: 19900101, end: 19980201
  2. PREMARIN [Suspect]
     Indication: HORMONE REPLACEMENT THERAPY
     Dosage: 0.625 MG, UNK
     Dates: start: 19900101, end: 19980201
  3. PREMARIN [Suspect]
     Dosage: UNK
     Dates: start: 19960301, end: 19960501
  4. PREMPRO [Suspect]
     Indication: HORMONE REPLACEMENT THERAPY
     Dosage: 0.625/2.5MG
     Dates: start: 19980201, end: 20010201
  5. ESTRACE [Suspect]
     Indication: HORMONE REPLACEMENT THERAPY
     Dosage: UNK
     Dates: start: 19970301, end: 19970401
  6. CYCRIN [Suspect]
     Indication: HORMONE REPLACEMENT THERAPY
     Dosage: 5 MG, UNK
     Dates: start: 19960401, end: 19960501
  7. HYDROCHLOROTHIAZIDE [Concomitant]
     Indication: HYPERTENSION
     Dosage: UNK
     Dates: start: 19960101
  8. HYDROCHLOROTHIAZIDE [Concomitant]
     Indication: FLUID RETENTION
  9. SYNTHROID [Concomitant]
     Indication: HYPOTHYROIDISM
     Dosage: UNK
     Dates: start: 19870101
  10. UNIVASC [Concomitant]
     Indication: HYPERTENSION
     Dosage: UNK
     Dates: start: 19960101

REACTIONS (1)
  - BREAST CANCER FEMALE [None]
